FAERS Safety Report 24548789 (Version 2)
Quarter: 2024Q4

REPORT INFORMATION
  Report Type: Spontaneous
  Country: CA (occurrence: CA)
  Receive Date: 20241025
  Receipt Date: 20241123
  Transmission Date: 20250115
  Serious: Yes (Hospitalization, Other)
  Sender: CELLTRION
  Company Number: CA-PFIZER INC-202400219371

PATIENT

DRUGS (9)
  1. INFLECTRA [Suspect]
     Active Substance: INFLIXIMAB-DYYB
     Indication: Crohn^s disease
     Dosage: 5 MG/KG, Q 0, 2 ,6, THEN EVERY 8 WEEKS
     Route: 042
     Dates: start: 20240605, end: 20240912
  2. INFLECTRA [Suspect]
     Active Substance: INFLIXIMAB-DYYB
     Dosage: 5 MG/KG (484.5 MG), 0, 2 ,6, THEN EVERY 8 WEEKS
     Route: 042
     Dates: start: 20240718
  3. INFLECTRA [Suspect]
     Active Substance: INFLIXIMAB-DYYB
     Dosage: 5 MG/KG (470.5 MG), WEEK 0 , 2, 6 AND THEN EVERY 8 WEEKS
     Route: 042
     Dates: start: 20240912
  4. INFLECTRA [Suspect]
     Active Substance: INFLIXIMAB-DYYB
     Dosage: 10MG/KG, (966MG) WEEK 0- REINDUCTION , Q 0, 2 ,6, THEN EVERY 8 WEEKS
     Route: 042
     Dates: start: 20241001
  5. INFLECTRA [Suspect]
     Active Substance: INFLIXIMAB-DYYB
     Dosage: 959 MG,(10MG/KG), WEEK 2-REINDUCTION,(Q 0, 2 ,6, THEN EVERY 8 WEEKS)
     Route: 042
     Dates: start: 20241017
  6. INFLECTRA [Suspect]
     Active Substance: INFLIXIMAB-DYYB
     Dosage: 939 MG, WEEK 6-REINDUCTION (10 MG/KG, REINDUCTION Q 0, 2 ,6, THEN EVERY 8 WEEKS)
     Route: 042
     Dates: start: 20241114
  7. CIPROFLOXACIN [Concomitant]
     Active Substance: CIPROFLOXACIN
     Dosage: 1 DF
     Dates: start: 202405
  8. FLAGYL [Concomitant]
     Active Substance: METRONIDAZOLE\METRONIDAZOLE HYDROCHLORIDE
     Dosage: 1 DF
     Dates: start: 202405
  9. PREDNISONE [Concomitant]
     Active Substance: PREDNISONE
     Dosage: 1 DF (TAPERING DOSE)
     Dates: start: 20240318

REACTIONS (8)
  - Fistula [Recovering/Resolving]
  - Anal fissure [Recovered/Resolved]
  - Blood pressure increased [Not Recovered/Not Resolved]
  - Drug level below therapeutic [Unknown]
  - Arthralgia [Recovered/Resolved]
  - Nausea [Recovering/Resolving]
  - Off label use [Unknown]
  - Off label use [Unknown]

NARRATIVE: CASE EVENT DATE: 20240101
